FAERS Safety Report 21468443 (Version 1)
Quarter: 2022Q4

REPORT INFORMATION
  Report Type: Spontaneous
  Country: US (occurrence: None)
  Receive Date: 20221015
  Receipt Date: 20221015
  Transmission Date: 20230113
  Serious: Yes (Hospitalization)
  Sender: FDA-Public Use
  Company Number: None

PATIENT
  Sex: Male
  Weight: 99 kg

DRUGS (5)
  1. CYCLOPHOSPHAMIDE [Suspect]
     Active Substance: CYCLOPHOSPHAMIDE
     Dates: end: 20180625
  2. CYTARABINE [Suspect]
     Active Substance: CYTARABINE
     Dates: end: 20180705
  3. MERCAPTOPURINE [Suspect]
     Active Substance: MERCAPTOPURINE
     Dates: end: 20180708
  4. METHOTREXATE [Suspect]
     Active Substance: METHOTREXATE
     Dates: end: 20180720
  5. RITUXIMAB [Suspect]
     Active Substance: RITUXIMAB
     Dates: end: 20180709

REACTIONS (3)
  - Haemoglobin decreased [None]
  - Haematocrit decreased [None]
  - Hyponatraemia [None]

NARRATIVE: CASE EVENT DATE: 20180729
